FAERS Safety Report 6259817-3 (Version None)
Quarter: 2009Q3

REPORT INFORMATION
  Report Type: 
  Country: None (occurrence: None)
  Receive Date: 20090706
  Receipt Date: 20090706
  Transmission Date: 20100115
  Serious: No
  Sender: FDA-Public Use
  Company Number: None

PATIENT
  Age: 65 Year
  Sex: Male
  Weight: 122.4712 kg

DRUGS (1)
  1. ZICAM [Suspect]
     Indication: NASOPHARYNGITIS
     Dosage: SPRAY IN EACH NOSTRIL 2X PD NASAL
     Route: 045
     Dates: start: 20090226, end: 20090227

REACTIONS (2)
  - ANOSMIA [None]
  - ASTHMA [None]
